FAERS Safety Report 4592387-4 (Version None)
Quarter: 2005Q1

REPORT INFORMATION
  Report Type: 
  Country: None (occurrence: None)
  Receive Date: 20050228
  Receipt Date: 20050111
  Transmission Date: 20050727
  Serious: No
  Sender: FDA-Public Use
  Company Number: US-BRISTOL-MYERS SQUIBB COMPANY-12820965

PATIENT
  Age: 51 Year
  Sex: Female

DRUGS (5)
  1. ABILIFY [Suspect]
     Route: 048
     Dates: start: 20041215
  2. WELLBUTRIN SR [Concomitant]
  3. DEPAKOTE [Concomitant]
  4. CLONAZEPAM [Concomitant]
  5. THYROID TAB [Concomitant]

REACTIONS (1)
  - TREMOR [None]
